FAERS Safety Report 15803530 (Version 2)
Quarter: 2019Q1

REPORT INFORMATION
  Report Type: Spontaneous
  Country: US (occurrence: US)
  Receive Date: 20190109
  Receipt Date: 20190227
  Transmission Date: 20190417
  Serious: Yes (Death)
  Sender: FDA-Public Use
  Company Number: US-CELGENEUS-USA-20190102154

PATIENT
  Age: 80 Year
  Sex: Female

DRUGS (2)
  1. OTEZLA [Suspect]
     Active Substance: APREMILAST
     Indication: OFF LABEL USE
  2. OTEZLA [Suspect]
     Active Substance: APREMILAST
     Indication: LICHEN PLANUS
     Route: 048
     Dates: start: 20181204, end: 20181211

REACTIONS (2)
  - Sepsis [Fatal]
  - Cholecystitis infective [Fatal]

NARRATIVE: CASE EVENT DATE: 20181221
